FAERS Safety Report 13121593 (Version 1)
Quarter: 2017Q1

REPORT INFORMATION
  Report Type: Spontaneous
  Country: US (occurrence: US)
  Receive Date: 20170115
  Receipt Date: 20170115
  Transmission Date: 20170428
  Serious: Yes (Other)
  Sender: FDA-Public Use
  Company Number: None

PATIENT
  Age: 31 Year
  Sex: Female
  Weight: 76.5 kg

DRUGS (5)
  1. WELLBUTRIN [Concomitant]
     Active Substance: BUPROPION HYDROCHLORIDE
  2. XANAX [Concomitant]
     Active Substance: ALPRAZOLAM
  3. SPIRONOLACTONE 100MG QUALITEST [Suspect]
     Active Substance: SPIRONOLACTONE
     Indication: ACNE
     Dosage: ?          QUANTITY:1 TABLET(S);?
     Route: 048
     Dates: start: 20151022, end: 20160225
  4. NEXIUM [Concomitant]
     Active Substance: ESOMEPRAZOLE MAGNESIUM
  5. TRETINOIN. [Concomitant]
     Active Substance: TRETINOIN

REACTIONS (3)
  - Swelling face [None]
  - Weight increased [None]
  - Abdominal pain upper [None]

NARRATIVE: CASE EVENT DATE: 20160108
